FAERS Safety Report 23981411 (Version 1)
Quarter: 2024Q2

REPORT INFORMATION
  Report Type: Spontaneous
  Country: US (occurrence: US)
  Receive Date: 20240617
  Receipt Date: 20240617
  Transmission Date: 20240715
  Serious: No
  Sender: FDA-Public Use
  Company Number: US-SA-SAC20240611001006

PATIENT
  Sex: Male

DRUGS (16)
  1. DUPIXENT [Suspect]
     Active Substance: DUPILUMAB
     Indication: Asthma
     Dosage: 300 MG, QOW
     Route: 058
     Dates: start: 20210112
  2. ANORO ELLIPTA [Concomitant]
     Active Substance: UMECLIDINIUM BROMIDE\VILANTEROL TRIFENATATE
  3. AZITHROMYCIN [Concomitant]
     Active Substance: AZITHROMYCIN
  4. BUSPIRONE [Concomitant]
     Active Substance: BUSPIRONE HYDROCHLORIDE
  5. DOXAZOSIN [Concomitant]
     Active Substance: DOXAZOSIN MESYLATE
  6. FINASTERIDE [Concomitant]
     Active Substance: FINASTERIDE
  7. FLOVENT HFA [Concomitant]
     Active Substance: FLUTICASONE PROPIONATE
  8. FLUTICASONE [Concomitant]
     Active Substance: FLUTICASONE
  9. MOMETASONE [Concomitant]
     Active Substance: MOMETASONE
  10. MONTELUKAST [Concomitant]
     Active Substance: MONTELUKAST SODIUM
  11. OXYBUTYNIN [Concomitant]
     Active Substance: OXYBUTYNIN\OXYBUTYNIN CHLORIDE
  12. PREDNISONE [Concomitant]
     Active Substance: PREDNISONE
  13. SIMVASTATIN [Concomitant]
     Active Substance: SIMVASTATIN
  14. TRAZODONE [Concomitant]
     Active Substance: TRAZODONE HYDROCHLORIDE
  15. AMMONIUM LACTATE [Concomitant]
     Active Substance: AMMONIUM LACTATE
  16. LEVOTHYROXINE [Concomitant]
     Active Substance: LEVOTHYROXINE\LEVOTHYROXINE SODIUM

REACTIONS (4)
  - Fall [Unknown]
  - Impaired quality of life [Unknown]
  - Asthma [Unknown]
  - Drug ineffective [Unknown]

NARRATIVE: CASE EVENT DATE: 20240101
